FAERS Safety Report 9795437 (Version 1)
Quarter: 2014Q1

REPORT INFORMATION
  Report Type: Spontaneous
  Country: US (occurrence: US)
  Receive Date: 20140103
  Receipt Date: 20140103
  Transmission Date: 20141002
  Serious: Yes (Hospitalization, Other)
  Sender: FDA-Public Use
  Company Number: US-JNJFOC-20131217850

PATIENT
  Age: 64 Year
  Sex: Female
  Weight: 77.11 kg

DRUGS (11)
  1. XARELTO [Suspect]
     Indication: DEEP VEIN THROMBOSIS
     Route: 048
     Dates: end: 20131227
  2. COUMADIN [Suspect]
     Indication: PRODUCT USED FOR UNKNOWN INDICATION
     Route: 065
     Dates: start: 201312
  3. TYLENOL [Concomitant]
     Indication: PYREXIA
     Dosage: 4-6 HOURS AS NEEDED
     Route: 065
  4. TYLENOL [Concomitant]
     Indication: PAIN
     Dosage: 4-6 HOURS AS NEEDED
     Route: 065
  5. ALBUTEROL [Concomitant]
     Indication: DYSPNOEA
     Dosage: EVERY 4-6 HOURS AS NEEDED
     Route: 055
  6. DILTIAZEM [Concomitant]
     Indication: HYPERTENSION
     Dosage: IN AM
     Route: 048
  7. PEPCID [Concomitant]
     Indication: GASTRITIS PROPHYLAXIS
     Route: 048
  8. ADVAIR [Concomitant]
     Indication: DYSPNOEA
     Dosage: 2 PUFFS BID
     Route: 055
  9. LASIX [Concomitant]
     Indication: OEDEMA
     Route: 065
  10. VICODIN [Concomitant]
     Indication: PAIN
     Dosage: 1-2 TABLETS EVERY 4 HOURS AS REQUIRED
     Route: 065
  11. LABETALOL [Concomitant]
     Indication: HYPERTENSION
     Route: 048

REACTIONS (11)
  - Syncope [Recovering/Resolving]
  - Sepsis [Recovering/Resolving]
  - Bradycardia [Recovering/Resolving]
  - International normalised ratio increased [Not Recovered/Not Resolved]
  - Prothrombin time prolonged [Not Recovered/Not Resolved]
  - Activated partial thromboplastin time prolonged [Not Recovered/Not Resolved]
  - Cardiac failure congestive [Recovering/Resolving]
  - Renal failure [Not Recovered/Not Resolved]
  - Diabetes mellitus [Recovering/Resolving]
  - Clostridium difficile colitis [Recovering/Resolving]
  - Oral candidiasis [Not Recovered/Not Resolved]
